FAERS Safety Report 23514964 (Version 1)
Quarter: 2024Q1

REPORT INFORMATION
  Report Type: Spontaneous
  Country: CA (occurrence: CA)
  Receive Date: 20240212
  Receipt Date: 20240212
  Transmission Date: 20240410
  Serious: Yes (Other)
  Sender: FDA-Public Use
  Company Number: CA-HLS-202400366

PATIENT
  Age: 53 Year
  Sex: Male
  Weight: 89 kg

DRUGS (18)
  1. CLOZAPINE [Suspect]
     Active Substance: CLOZAPINE
     Indication: Aggression
     Dosage: AMOUNT: 12.5 MILLIGRAM
     Route: 065
  2. CLOZAPINE [Suspect]
     Active Substance: CLOZAPINE
     Indication: Psychotic symptom
     Dosage: AMOUNT: 12.5 MILLIGRAM
     Route: 065
  3. CLOZAPINE [Suspect]
     Active Substance: CLOZAPINE
     Indication: Aggression
     Dosage: AMOUNT: 25 MILLIGRAM
     Route: 065
  4. CLOZAPINE [Suspect]
     Active Substance: CLOZAPINE
     Indication: Psychotic symptom
     Dosage: AMOUNT: 25 MILLIGRAM
     Route: 065
  5. CLOZAPINE [Suspect]
     Active Substance: CLOZAPINE
     Indication: Aggression
     Dosage: AMOUNT: 6.25 MILLIGRAM
     Route: 065
  6. CLOZAPINE [Suspect]
     Active Substance: CLOZAPINE
     Indication: Psychotic symptom
     Dosage: AMOUNT: 6.25 MILLIGRAM
     Route: 065
  7. CLOZAPINE [Suspect]
     Active Substance: CLOZAPINE
     Indication: Aggression
     Dosage: TABLETS DOSAGE FORM?THERAPY DURATION: 3 DAYS
     Route: 065
  8. CLOZAPINE [Suspect]
     Active Substance: CLOZAPINE
     Indication: Psychotic symptom
     Dosage: TABLETS DOSAGE FORM?THERAPY DURATION: 3 DAYS
     Route: 065
  9. COGENTIN [Concomitant]
     Active Substance: BENZTROPINE MESYLATE
     Dosage: NOT SPECIFIED DOSAGE FORM
     Route: 065
  10. LIPITOR [Concomitant]
     Active Substance: ATORVASTATIN CALCIUM
     Dosage: NOT SPECIFIED DOSAGE FORM
     Route: 065
  11. LYRICA [Concomitant]
     Active Substance: PREGABALIN
     Dosage: CAPSULES DOSAGE FORM
     Route: 065
  12. MORNIFLUMATE [Concomitant]
     Active Substance: MORNIFLUMATE
     Route: 065
  13. PROPRANOLOL HYDROCHLORIDE [Concomitant]
     Active Substance: PROPRANOLOL HYDROCHLORIDE
     Route: 065
  14. QUETIAPINE [Concomitant]
     Active Substance: QUETIAPINE
     Dosage: TABLETS DOSAGE FORM
     Route: 065
  15. RIVOTRIL [Concomitant]
     Active Substance: CLONAZEPAM
     Dosage: TABLETS DOSAGE FORM
     Route: 065
  16. TENOFOVIR [Concomitant]
     Active Substance: TENOFOVIR
     Route: 065
  17. VALACYCLOVIR HYDROCHLORIDE [Concomitant]
     Active Substance: VALACYCLOVIR HYDROCHLORIDE
     Route: 065
  18. ZUCLOPENTHIXOL HYDROCHLORIDE [Concomitant]
     Active Substance: ZUCLOPENTHIXOL HYDROCHLORIDE
     Route: 065

REACTIONS (5)
  - Chest pain [Unknown]
  - C-reactive protein increased [Unknown]
  - Fibrin D dimer increased [Unknown]
  - Hypotension [Unknown]
  - Pulmonary embolism [Unknown]
